FAERS Safety Report 9785812 (Version 1)
Quarter: 2013Q4

REPORT INFORMATION
  Report Type: Spontaneous
  Country: US (occurrence: None)
  Receive Date: 20131224
  Receipt Date: 20131224
  Transmission Date: 20140711
  Serious: Yes (Hospitalization)
  Sender: FDA-Public Use
  Company Number: 1939431

PATIENT
  Age: 64 Year
  Sex: Female

DRUGS (1)
  1. CARBOPLATIN [Suspect]
     Indication: OVARIAN NEOPLASM
     Route: 042
     Dates: start: 20110927, end: 20110927

REACTIONS (2)
  - Abdominal pain upper [None]
  - Oesophageal pain [None]
